FAERS Safety Report 8273819-7 (Version None)
Quarter: 2012Q2

REPORT INFORMATION
  Report Type: 
  Country: None (occurrence: None)
  Receive Date: 20120411
  Receipt Date: 20120409
  Transmission Date: 20120825
  Serious: Yes (Disabling)
  Sender: FDA-Public Use
  Company Number: PHEH2011US013107

PATIENT
  Sex: Female
  Weight: 68.027 kg

DRUGS (7)
  1. THYROID [Concomitant]
     Route: 048
  2. GILENYA [Suspect]
     Indication: MULTIPLE SCLEROSIS
     Dosage: 0.5 MG, QD
     Dates: start: 20110517, end: 20110901
  3. AMPYRA [Concomitant]
     Indication: GAIT DISTURBANCE
     Dosage: 10 MG, UNK
     Route: 048
  4. VESICARE [Concomitant]
     Indication: URINARY INCONTINENCE
     Dosage: 5 UG, DAILY
     Route: 048
  5. AMBIEN [Concomitant]
     Indication: INSOMNIA
     Route: 048
  6. NUVIGIL [Concomitant]
     Indication: FATIGUE
     Route: 048
  7. MARIJUANA [Concomitant]
     Indication: MUSCLE SPASMS

REACTIONS (2)
  - BLOOD PRESSURE DECREASED [None]
  - DIZZINESS [None]
